FAERS Safety Report 6530219-5 (Version None)
Quarter: 2009Q4

REPORT INFORMATION
  Report Type: 
  Country: None (occurrence: None)
  Receive Date: 20091231
  Receipt Date: 20091222
  Transmission Date: 20100525
  Serious: Yes (Death, Other)
  Sender: FDA-Public Use
  Company Number: MC200900439

PATIENT

DRUGS (2)
  1. ANGIOMAX [Suspect]
     Indication: PERCUTANEOUS CORONARY INTERVENTION
  2. CLOPIDOGREL [Suspect]
     Indication: PERCUTANEOUS CORONARY INTERVENTION

REACTIONS (3)
  - CARDIAC DEATH [None]
  - MYOCARDIAL INFARCTION [None]
  - POST PROCEDURAL HAEMORRHAGE [None]
